FAERS Safety Report 25393866 (Version 1)
Quarter: 2025Q2

REPORT INFORMATION
  Report Type: Spontaneous
  Country: PL (occurrence: PL)
  Receive Date: 20250604
  Receipt Date: 20250604
  Transmission Date: 20250716
  Serious: Yes (Hospitalization, Other)
  Sender: SANDOZ
  Company Number: PL-002147023-NVSC2022PL064106

PATIENT
  Age: 68 Year
  Sex: Female

DRUGS (2)
  1. METHOTREXATE [Suspect]
     Active Substance: METHOTREXATE
     Indication: Arthritis
     Dosage: 15 MG, QD (THE PATIENT WAS TAKING MTX EVERY DAY FOR THE NEXT 11 DAYS)
     Route: 065
  2. FOLIC ACID [Concomitant]
     Active Substance: FOLIC ACID
     Indication: Mouth ulceration
     Dosage: 15 MG, QD
     Route: 048

REACTIONS (7)
  - Toxicity to various agents [Unknown]
  - Pain [Recovered/Resolved]
  - Mouth ulceration [Recovering/Resolving]
  - Stomatitis [Recovered/Resolved]
  - Pyrexia [Recovered/Resolved]
  - Accidental overdose [Recovering/Resolving]
  - Inappropriate schedule of product administration [Unknown]
